FAERS Safety Report 22091798 (Version 1)
Quarter: 2023Q1

REPORT INFORMATION
  Report Type: Other
  Country: FR (occurrence: FR)
  Receive Date: 20230314
  Receipt Date: 20230314
  Transmission Date: 20230418
  Serious: Yes (Life-Threatening, Hospitalization, Other)
  Sender: FDA-Public Use
  Company Number: FR-DENTSPLY-2023SCDP000073

PATIENT
  Age: 32 Year
  Sex: Female

DRUGS (7)
  1. LIDOCAINE [Suspect]
     Active Substance: LIDOCAINE
     Indication: Local anaesthesia
     Dosage: UNK 2% LIDOCAINE BOLUS
  2. EPINEPHRINE [Suspect]
     Active Substance: EPINEPHRINE
     Indication: Local anaesthesia
     Dosage: 60 MILLIGRAM
  3. ROPIVACAINE [Suspect]
     Active Substance: ROPIVACAINE
     Indication: Epidural analgesia
     Dosage: UNK 1 MG/ML ROPIVACAINE (FIRST BOLUS)
     Route: 008
  4. ROPIVACAINE [Suspect]
     Active Substance: ROPIVACAINE
     Dosage: 73 MILLIGRAM PER 5 HOURS BOLUS DOSE OF 10 MG/ML ROPIVACAINE (1ST BOLUS 8 MG, 3RD BOLUS {5 MG + MAXIM
     Route: 008
  5. ROPIVACAINE [Suspect]
     Active Substance: ROPIVACAINE
     Dosage: 8 MILLILITER (73 MILLIGRAM/5 HOURS BOLUS DOSE) (1ST BOLUS 8 MG, 3RD BOLUS {5 MG + MAXIMUM 100 MG (10
     Route: 008
  6. SUFENTANIL [Suspect]
     Active Substance: SUFENTANIL
     Indication: Analgesic therapy
     Dosage: UNK 0.25 MCG/ML SUFENTANIL
     Route: 008
  7. OXYTOCIN [Concomitant]
     Active Substance: OXYTOCIN
     Indication: Labour induction
     Dosage: UNK
     Route: 042

REACTIONS (5)
  - Incorrect dose administered [Recovered/Resolved]
  - Loss of consciousness [Recovered/Resolved]
  - Generalised tonic-clonic seizure [Recovered/Resolved]
  - Local anaesthetic systemic toxicity [Recovered/Resolved]
  - Cardiac arrest [Recovered/Resolved]
